FAERS Safety Report 17492195 (Version 1)
Quarter: 2020Q1

REPORT INFORMATION
  Report Type: Spontaneous
  Country: ES (occurrence: ES)
  Receive Date: 20200304
  Receipt Date: 20200304
  Transmission Date: 20200409
  Serious: Yes (Hospitalization)
  Sender: FDA-Public Use
  Company Number: ES-SUN PHARMACEUTICAL INDUSTRIES LTD-2020RR-239056

PATIENT
  Age: 62 Year
  Sex: Female

DRUGS (4)
  1. CAPECITABINA [Suspect]
     Active Substance: CAPECITABINE
     Indication: ADENOCARCINOMA GASTRIC
     Dosage: ULTIMO CICLO ()
     Route: 065
     Dates: start: 201806, end: 201809
  2. OXALIPLATIN. [Suspect]
     Active Substance: OXALIPLATIN
     Indication: ADENOCARCINOMA GASTRIC
     Dosage: ULTIMO CICLO ()
     Route: 065
     Dates: start: 201806, end: 201809
  3. FLUOROURACILO [Suspect]
     Active Substance: FLUOROURACIL
     Indication: ADENOCARCINOMA GASTRIC
     Dosage: ULTIMO CICLO ()
     Route: 065
     Dates: start: 201806, end: 201809
  4. ACIDO FOLINICO [Suspect]
     Active Substance: LEUCOVORIN CALCIUM
     Indication: ADENOCARCINOMA GASTRIC
     Dosage: ULTIMO CICLO ()
     Route: 065
     Dates: start: 201806, end: 201809

REACTIONS (5)
  - General physical health deterioration [Recovering/Resolving]
  - Neuritis [Recovering/Resolving]
  - Asthenia [Recovering/Resolving]
  - Oral candidiasis [Recovering/Resolving]
  - Mucosal inflammation [Recovering/Resolving]

NARRATIVE: CASE EVENT DATE: 201809
